FAERS Safety Report 4848898-7 (Version None)
Quarter: 2005Q4

REPORT INFORMATION
  Report Type: 
  Country: None (occurrence: None)
  Receive Date: 20051208
  Receipt Date: 20051005
  Transmission Date: 20060501
  Serious: Yes (Hospitalization)
  Sender: FDA-Public Use
  Company Number: US-MERCK-0510USA04767

PATIENT
  Age: 62 Year
  Sex: Male
  Weight: 109 kg

DRUGS (2)
  1. VIOXX [Suspect]
     Indication: ARTHRITIS
     Route: 048
     Dates: start: 19990701, end: 20040901
  2. [THERAPY UNSPECIFIED] [Concomitant]
     Indication: RENAL DISORDER
     Route: 065

REACTIONS (7)
  - ADVERSE EVENT [None]
  - ANAEMIA [None]
  - ANGINA PECTORIS [None]
  - CARDIAC DISORDER [None]
  - CORONARY ARTERY DISEASE [None]
  - DEPRESSION [None]
  - MYOCARDIAL INFARCTION [None]
